FAERS Safety Report 9176115 (Version 2)
Quarter: 2012Q4

REPORT INFORMATION
  Report Type: 
  Country: US (occurrence: US)
  Receive Date: 20120919
  Receipt Date: 20120924
  Transmission Date: 20130627
  Serious: Yes (Other)
  Sender: FDA-Public Use
  Company Number: US-RB-044480-12

PATIENT
  Age: 16 None
  Sex: Male
  Weight: 63 kg

DRUGS (2)
  1. MUCINEX FAST-MAX COLD AND SINUS [Suspect]
     Indication: NASAL CONGESTION
     Route: 048
     Dates: start: 20120908
  2. MUCINEX FAST-MAX COLD AND SINUS [Suspect]
     Indication: NASAL CONGESTION
     Route: 048
     Dates: start: 20120908

REACTIONS (12)
  - Lip swelling [Recovered/Resolved]
  - Eye swelling [Recovered/Resolved]
  - Auricular swelling [Recovered/Resolved]
  - Eyelid oedema [Recovered/Resolved]
  - Pruritus [Recovered/Resolved]
  - Pruritus [Recovered/Resolved]
  - Rash [Recovered/Resolved]
  - Hypersensitivity [Recovered/Resolved]
  - Off label use [Recovered/Resolved]
  - Ear pruritus [None]
  - Sensation of foreign body [None]
  - Skin disorder [None]
